FAERS Safety Report 6478093-X (Version None)
Quarter: 2009Q4

REPORT INFORMATION
  Report Type: 
  Country: None (occurrence: None)
  Receive Date: 20091207
  Receipt Date: 20091202
  Transmission Date: 20100525
  Serious: Yes (Life-Threatening)
  Sender: FDA-Public Use
  Company Number: US-MERCK-0911USA04756

PATIENT
  Age: 12 Year
  Sex: Male

DRUGS (9)
  1. SINGULAIR [Suspect]
     Indication: ASTHMA
     Route: 048
     Dates: start: 20091001, end: 20091101
  2. CLARITIN [Concomitant]
     Route: 065
  3. ASTELIN [Concomitant]
     Route: 065
  4. ALBUTEROL [Concomitant]
     Route: 065
  5. RETIN-A [Concomitant]
     Route: 065
  6. BENZACLIN [Concomitant]
     Route: 065
  7. RHINOCORT [Concomitant]
     Route: 065
  8. SYMBICORT [Concomitant]
     Route: 065
     Dates: start: 20091007, end: 20091101
  9. ATARAX (ALPRAZOLAM) [Concomitant]
     Route: 065
     Dates: start: 20091007, end: 20091101

REACTIONS (3)
  - DEPRESSED MOOD [None]
  - MOOD ALTERED [None]
  - SUICIDAL IDEATION [None]
